FAERS Safety Report 8891277 (Version 1)
Quarter: 2012Q4

REPORT INFORMATION
  Report Type: 
  Country: US (occurrence: US)
  Receive Date: 20121107
  Receipt Date: 20121107
  Transmission Date: 20130627
  Serious: No
  Sender: FDA-Public Use
  Company Number: US-BAYER-2012-116590

PATIENT
  Sex: Female

DRUGS (2)
  1. ALEVE LIQUID GELS [Suspect]
     Route: 048
  2. ALEVE CAPLET/TABLET,MIDOL EXTENDED RELIEF CAPLET [Suspect]
     Route: 048

REACTIONS (2)
  - Drug ineffective [None]
  - Aphthous stomatitis [Unknown]
